FAERS Safety Report 5491812-4 (Version None)
Quarter: 2007Q4

REPORT INFORMATION
  Report Type: 
  Country: None (occurrence: None)
  Receive Date: 20071018
  Receipt Date: 20070925
  Transmission Date: 20080405
  Serious: Yes (Other)
  Sender: FDA-Public Use
  Company Number: 2007SP020318

PATIENT
  Age: 60 Year
  Sex: Female
  Weight: 104.3273 kg

DRUGS (6)
  1. CLARITIN-D 24 HOUR [Suspect]
     Indication: AURICULAR SWELLING
     Dosage: 10 MG; QD; PO
     Route: 048
     Dates: start: 20070926, end: 20070929
  2. CLARITIN-D 24 HOUR [Suspect]
     Indication: EAR CONGESTION
     Dosage: 10 MG; QD; PO
     Route: 048
     Dates: start: 20070926, end: 20070929
  3. SORAFENIB [Suspect]
     Indication: LUNG NEOPLASM MALIGNANT
     Dates: start: 20070801
  4. TOPOTECAN [Suspect]
     Indication: LUNG NEOPLASM MALIGNANT
     Dates: start: 20070801
  5. TRIAMPTERENE AND HYDROCHLOROTHIAZID (CON.) [Concomitant]
  6. ONDANSETRON (CON.) [Concomitant]

REACTIONS (4)
  - HYPOTHERMIA [None]
  - LARYNGITIS [None]
  - TINNITUS [None]
  - WHITE BLOOD CELL COUNT DECREASED [None]
